FAERS Safety Report 7185907-7 (Version None)
Quarter: 2010Q4

REPORT INFORMATION
  Report Type: 
  Country: None (occurrence: None)
  Receive Date: 20101222
  Receipt Date: 20101215
  Transmission Date: 20110411
  Serious: Yes (Other)
  Sender: FDA-Public Use
  Company Number: PHHY2010KR85159

PATIENT
  Age: 52 Year
  Sex: Male

DRUGS (2)
  1. METRONIDAZOLE [Suspect]
     Dosage: 2 G, QD
  2. CEFTRIAXONE SODIUM [Suspect]
     Dosage: 8 G
     Route: 042

REACTIONS (8)
  - DIPLOPIA [None]
  - DIZZINESS [None]
  - DYSPHAGIA [None]
  - HEMIPARESIS [None]
  - NYSTAGMUS [None]
  - TINNITUS [None]
  - TOXIC ENCEPHALOPATHY [None]
  - VITH NERVE PARALYSIS [None]
